FAERS Safety Report 4616356-0 (Version None)
Quarter: 2005Q1

REPORT INFORMATION
  Report Type: 
  Country: None (occurrence: None)
  Receive Date: 20050321
  Receipt Date: 20050311
  Transmission Date: 20050727
  Serious: Yes (Other)
  Sender: FDA-Public Use
  Company Number: 2005-03-1055

PATIENT
  Age: 50 Year
  Sex: Female

DRUGS (4)
  1. INTRON A [Suspect]
     Indication: MALIGNANT MELANOMA
     Dosage: 34 MIU 5XWK INTRAVENOUS
     Route: 042
     Dates: start: 20050221, end: 20050225
  2. COMPAZINE [Concomitant]
  3. ZOFRAN [Concomitant]
  4. TYLENOL (CAPLET) [Concomitant]

REACTIONS (4)
  - ABDOMINAL PAIN [None]
  - COLITIS [None]
  - CROHN'S DISEASE [None]
  - RECTAL HAEMORRHAGE [None]
